FAERS Safety Report 8106718-1 (Version None)
Quarter: 2011Q4

REPORT INFORMATION
  Report Type: 
  Country: None (occurrence: None)
  Receive Date: 20111222
  Receipt Date: 20111108
  Transmission Date: 20120403
  Serious: Yes (Hospitalization)
  Sender: FDA-Public Use
  Company Number: UTC-012216

PATIENT
  Age: 85 Year
  Sex: Female
  Weight: 53.2 kg

DRUGS (5)
  1. REVATIO [Concomitant]
  2. TYVASO [Suspect]
     Indication: PULMONARY HYPERTENSION
     Dosage: 216 MCG (54 MCG,4 IN 1 D),INHALATION
     Route: 055
     Dates: start: 20100505
  3. ASPIRIN [Concomitant]
  4. COUMADIN [Concomitant]
  5. DIURETICS (DIURETICS) [Concomitant]

REACTIONS (2)
  - SURGERY [None]
  - NEOPLASM MALIGNANT [None]
